FAERS Safety Report 21554989 (Version 1)
Quarter: 2022Q4

REPORT INFORMATION
  Report Type: Other
  Country: IT (occurrence: None)
  Receive Date: 20221104
  Receipt Date: 20221104
  Transmission Date: 20230113
  Serious: Yes (Other)
  Sender: FDA-Public Use
  Company Number: IT-ROCHE-3149974

PATIENT
  Age: 61 Year
  Sex: Female

DRUGS (1)
  1. CAPECITABINE [Suspect]
     Active Substance: CAPECITABINE
     Indication: Neoplasm malignant
     Route: 048

REACTIONS (3)
  - Angina pectoris [Not Recovered/Not Resolved]
  - Myocardial ischaemia [Unknown]
  - Ventricular extrasystoles [Unknown]
